FAERS Safety Report 14916184 (Version 2)
Quarter: 2018Q3

REPORT INFORMATION
  Report Type: Spontaneous
  Country: US (occurrence: US)
  Receive Date: 20180518
  Receipt Date: 20180810
  Transmission Date: 20181010
  Serious: Yes (Other)
  Sender: FDA-Public Use
  Company Number: US-009507513-1805USA004765

PATIENT
  Age: 29 Year
  Sex: Female

DRUGS (4)
  1. STERILE DILUENT (WATER) [Suspect]
     Active Substance: WATER
     Dosage: 1 DF, UNK
     Dates: start: 20180424
  2. VARIVAX [Suspect]
     Active Substance: VARICELLA-ZOSTER VIRUS STRAIN OKA/MERCK LIVE ANTIGEN
     Indication: PROPHYLAXIS
     Dosage: 1 DF
     Dates: start: 20180329, end: 20180329
  3. VARIVAX [Suspect]
     Active Substance: VARICELLA-ZOSTER VIRUS STRAIN OKA/MERCK LIVE ANTIGEN
     Dosage: 1 DF
     Dates: start: 20180424, end: 20180424
  4. STERILE DILUENT (WATER) [Suspect]
     Active Substance: WATER
     Dosage: 1 DF, UNK
     Dates: start: 20180329

REACTIONS (3)
  - Exposure during pregnancy [Unknown]
  - Inappropriate schedule of drug administration [Unknown]
  - Abortion threatened [Recovered/Resolved]

NARRATIVE: CASE EVENT DATE: 20180414
